FAERS Safety Report 4904866-8 (Version None)
Quarter: 2006Q1

REPORT INFORMATION
  Report Type: 
  Country: None (occurrence: None)
  Receive Date: 20060208
  Receipt Date: 20051014
  Transmission Date: 20060701
  Serious: No
  Sender: FDA-Public Use
  Company Number: US-GLAXOSMITHKLINE-A0578285A

PATIENT
  Sex: Female

DRUGS (14)
  1. PAROXETINE HCL [Suspect]
     Dosage: 30MG PER DAY
     Route: 048
     Dates: start: 20040101
  2. PAXIL [Suspect]
     Dosage: 37.5MG PER DAY
     Route: 048
     Dates: start: 20050315
  3. ALPRAZOLAM [Concomitant]
  4. ALTACE [Concomitant]
  5. FOLIC ACID [Concomitant]
  6. LEVOTHYROXINE SODIUM [Concomitant]
  7. METHOCARBAMOL [Concomitant]
  8. ZOCOR [Concomitant]
  9. ASCORBIC ACID [Concomitant]
  10. ASPIRIN [Concomitant]
  11. CALCIUM GLUCONATE [Concomitant]
  12. COD LIVER OIL [Concomitant]
  13. MAGNESIUM OXIDE [Concomitant]
  14. VITAMIN B COMPLEX CAP [Concomitant]

REACTIONS (7)
  - DIARRHOEA [None]
  - DIZZINESS [None]
  - FEELING HOT [None]
  - HEART RATE IRREGULAR [None]
  - MYALGIA [None]
  - RASH [None]
  - TREMOR [None]
